FAERS Safety Report 20704467 (Version 1)
Quarter: 2022Q2

REPORT INFORMATION
  Report Type: Spontaneous
  Country: FR (occurrence: FR)
  Receive Date: 20220413
  Receipt Date: 20220413
  Transmission Date: 20220720
  Serious: Yes (Other)
  Sender: FDA-Public Use
  Company Number: None

PATIENT
  Age: 86 Year
  Sex: Male

DRUGS (13)
  1. FOLIC ACID [Suspect]
     Active Substance: FOLIC ACID
     Indication: Vitamin supplementation
     Dosage: UNKNOWN
     Route: 048
     Dates: start: 20210120
  2. BISOPROLOL [Suspect]
     Active Substance: BISOPROLOL
     Indication: Atrial flutter
     Dosage: 10 MILLIGRAM, QD, 1 DF
     Route: 048
     Dates: start: 20210120
  3. BISOPROLOL [Suspect]
     Active Substance: BISOPROLOL
     Indication: Atrial flutter
     Dosage: 1 DOSAGE FORM, QD
     Route: 048
     Dates: start: 20210120
  4. LOVENOX [Suspect]
     Active Substance: ENOXAPARIN SODIUM
     Indication: Cardiovascular event prophylaxis
     Dosage: 2 DOSAGE FORM, QD
     Route: 058
     Dates: start: 20210125, end: 20210127
  5. LOVENOX [Suspect]
     Active Substance: ENOXAPARIN SODIUM
     Dosage: 1200 INTERNATIONAL UNIT, QD
     Route: 058
     Dates: start: 20210125, end: 20210127
  6. ELIQUIS [Suspect]
     Active Substance: APIXABAN
     Indication: Cardiovascular event prophylaxis
     Dosage: UNK
     Route: 048
     Dates: start: 202101, end: 20210125
  7. KARDEGIC [Suspect]
     Active Substance: ASPIRIN DL-LYSINE
     Indication: Cardiovascular event prophylaxis
     Dosage: 1 DOSAGE FORM, QD
     Route: 048
     Dates: start: 20210121
  8. KARDEGIC [Suspect]
     Active Substance: ASPIRIN DL-LYSINE
     Dosage: 75 MILLIGRAM, QD
     Route: 048
     Dates: start: 20210121
  9. SYMBICORT [Suspect]
     Active Substance: BUDESONIDE\FORMOTEROL FUMARATE DIHYDRATE
     Indication: Product used for unknown indication
     Dosage: INCONNUE
     Route: 055
     Dates: start: 20210119
  10. ULTRAVIST [Suspect]
     Active Substance: IOPROMIDE
     Indication: Scan
     Dosage: INCONNUE
     Route: 042
     Dates: start: 20210125, end: 20210125
  11. IOPROMIDE [Suspect]
     Active Substance: IOPROMIDE
     Indication: Scan
     Dosage: UNK
     Route: 042
     Dates: start: 20210125, end: 20210125
  12. BUTYLSCOPOLAMINE BROMIDE [Suspect]
     Active Substance: BUTYLSCOPOLAMINE BROMIDE
     Indication: Atrial flutter
     Dosage: 20 MILLIGRAM, QD
     Route: 048
     Dates: start: 20210120
  13. APIXABAN [Suspect]
     Active Substance: APIXABAN
     Indication: Cardiovascular event prophylaxis
     Dosage: UNK
     Route: 048
     Dates: start: 202101, end: 20210125

REACTIONS (2)
  - Eosinophilia [Unknown]
  - Drug eruption [Unknown]

NARRATIVE: CASE EVENT DATE: 20210127
